FAERS Safety Report 14479413 (Version 1)
Quarter: 2018Q1

REPORT INFORMATION
  Report Type: Spontaneous
  Country: US (occurrence: US)
  Receive Date: 20180202
  Receipt Date: 20180202
  Transmission Date: 20180509
  Serious: Yes (Other)
  Sender: FDA-Public Use
  Company Number: US-ROCHE-2064344

PATIENT
  Age: 60 Year
  Sex: Male
  Weight: 79.9 kg

DRUGS (5)
  1. TYLENOL [Concomitant]
     Active Substance: ACETAMINOPHEN
     Indication: PREMEDICATION
     Dosage: ONGOING:NO
     Route: 065
  2. OCREVUS [Suspect]
     Active Substance: OCRELIZUMAB
     Indication: PRIMARY PROGRESSIVE MULTIPLE SCLEROSIS
     Dosage: ONGOING:NO
     Route: 042
     Dates: start: 20180119, end: 20180119
  3. BENADRYL [Concomitant]
     Active Substance: DIPHENHYDRAMINE HYDROCHLORIDE
     Indication: PREMEDICATION
     Dosage: ONGOING:NO
     Route: 065
  4. KEPPRA [Concomitant]
     Active Substance: LEVETIRACETAM
     Dosage: ONGOING:YES
     Route: 065
     Dates: start: 20180123
  5. BACLOFEN. [Concomitant]
     Active Substance: BACLOFEN
     Dosage: ONGOING:YES
     Route: 065

REACTIONS (18)
  - Nasal congestion [Recovered/Resolved]
  - Vomiting [Unknown]
  - Paralysis [Unknown]
  - Lhermitte^s sign [Unknown]
  - Foaming at mouth [Unknown]
  - Amnesia [Unknown]
  - Tremor [Recovered/Resolved]
  - Cough [Recovered/Resolved]
  - Incoherent [Unknown]
  - Seizure [Unknown]
  - Malaise [Unknown]
  - Fall [Unknown]
  - Nausea [Unknown]
  - Hyperhidrosis [Recovered/Resolved]
  - Musculoskeletal stiffness [Unknown]
  - Eye movement disorder [Unknown]
  - Nasopharyngitis [Recovered/Resolved]
  - Blood pressure increased [Unknown]

NARRATIVE: CASE EVENT DATE: 20180119
